FAERS Safety Report 9438678 (Version 1)
Quarter: 2013Q3

REPORT INFORMATION
  Report Type: Spontaneous
  Country: US (occurrence: US)
  Receive Date: 20130802
  Receipt Date: 20130802
  Transmission Date: 20140515
  Serious: No
  Sender: FDA-Public Use
  Company Number: US-B.I. PHARMACEUTICALS,INC./RIDGEFIELD-2013-BI-22492BP

PATIENT
  Age: 78 Year
  Sex: Female

DRUGS (13)
  1. PRADAXA [Suspect]
     Indication: ATRIAL FIBRILLATION
     Dosage: 300 MG
     Route: 048
     Dates: start: 201306, end: 20130723
  2. PRADAXA [Suspect]
     Dosage: 300 MG
     Route: 048
     Dates: start: 2012, end: 201306
  3. PRADAXA [Suspect]
     Dosage: 300 MG
     Route: 048
     Dates: start: 2012, end: 2012
  4. JANUVIA [Concomitant]
     Indication: DIABETES MELLITUS
     Dosage: 50 MG
     Route: 048
     Dates: start: 2012
  5. CARVEDILOL [Concomitant]
     Dosage: 12.5 MG
     Route: 048
     Dates: start: 2006
  6. LISINOPRIL [Concomitant]
     Indication: HYPERTENSION
     Dosage: 10 MG
     Route: 048
     Dates: start: 2006
  7. FUROSEMIDE [Concomitant]
     Indication: CARDIAC FAILURE CONGESTIVE
     Dosage: 40 MG
     Route: 048
     Dates: start: 2006
  8. POTASSIUM CHLORIDE [Concomitant]
     Indication: BLOOD POTASSIUM DECREASED
     Dosage: 30 MEQ
     Route: 048
     Dates: start: 2006
  9. DIGITALIS [Concomitant]
     Indication: HEART RATE INCREASED
     Dosage: 0.125 MG
     Route: 048
     Dates: start: 201306
  10. ISOSORBIDE [Concomitant]
     Indication: HEART RATE INCREASED
     Dosage: 30 MG
     Route: 048
     Dates: start: 201306
  11. ZOCOR [Concomitant]
     Indication: BLOOD CHOLESTEROL INCREASED
     Dosage: 40 MG
     Route: 048
     Dates: start: 2007
  12. ASPIRIN [Concomitant]
     Dosage: 62.5 MG
     Route: 048
     Dates: start: 2007
  13. OMEPRAZOLE [Concomitant]
     Indication: GASTROOESOPHAGEAL REFLUX DISEASE
     Dosage: 20 MG
     Route: 048
     Dates: start: 2007

REACTIONS (5)
  - Haematuria [Not Recovered/Not Resolved]
  - Dizziness [Recovered/Resolved]
  - Vomiting [Recovered/Resolved]
  - Haematuria [Recovered/Resolved]
  - Hypotension [Not Recovered/Not Resolved]
